FAERS Safety Report 25948086 (Version 1)
Quarter: 2025Q4

REPORT INFORMATION
  Report Type: Spontaneous
  Country: US (occurrence: None)
  Receive Date: 20251021
  Receipt Date: 20251021
  Transmission Date: 20260117
  Serious: No
  Sender: FDA-CTU
  Company Number: None

PATIENT
  Age: 44 Year
  Sex: Male

DRUGS (1)
  1. XELJANZ [Suspect]
     Active Substance: TOFACITINIB CITRATE
     Indication: Psoriatic arthropathy
     Dosage: FREQUENCY : TWICE A DAY;?
     Route: 048

REACTIONS (13)
  - Wrong technique in product usage process [None]
  - Illness [None]
  - Vomiting [None]
  - Cold sweat [None]
  - Heart rate increased [None]
  - Muscular weakness [None]
  - Sleep disorder [None]
  - Behaviour disorder [None]
  - Fall [None]
  - Sleep terror [None]
  - Aggression [None]
  - Psoriatic arthropathy [None]
  - Alcohol use [None]
